FAERS Safety Report 17691778 (Version 6)
Quarter: 2020Q4

REPORT INFORMATION
  Report Type: Other
  Country: GB (occurrence: GB)
  Receive Date: 20200422
  Receipt Date: 20201224
  Transmission Date: 20210113
  Serious: Yes (Death, Hospitalization)
  Sender: FDA-Public Use
  Company Number: GB-ROCHE-1742983

PATIENT
  Age: 78 Year
  Sex: Female

DRUGS (17)
  1. LETROZOLE. [Suspect]
     Active Substance: LETROZOLE
     Indication: BREAST CANCER METASTATIC
     Route: 048
     Dates: start: 20150819, end: 20160113
  2. DENOSUMAB [Suspect]
     Active Substance: DENOSUMAB
     Indication: BREAST CANCER METASTATIC
     Route: 042
     Dates: start: 20150530, end: 20150728
  3. DENOSUMAB [Suspect]
     Active Substance: DENOSUMAB
     Route: 058
     Dates: start: 20150602
  4. ADCAL-D3 [Concomitant]
     Active Substance: CALCIUM CARBONATE\CHOLECALCIFEROL
     Route: 048
     Dates: start: 201604
  5. BENDROFLUMETHIAZID [Concomitant]
     Indication: HYPERTENSION
     Route: 048
     Dates: start: 20160412
  6. COCODAMOL [Concomitant]
     Active Substance: ACETAMINOPHEN\CODEINE PHOSPHATE
     Indication: CELLULITIS
     Route: 048
     Dates: start: 20150716
  7. GLYCEROL [Concomitant]
     Active Substance: GLYCERIN
     Indication: CONSTIPATION PROPHYLAXIS
     Dosage: PR? OTHER
     Route: 054
     Dates: start: 20150819
  8. FULVESTRANT. [Suspect]
     Active Substance: FULVESTRANT
     Indication: BREAST CANCER METASTATIC
     Route: 058
     Dates: start: 20150331, end: 20150728
  9. EXEMESTANE. [Suspect]
     Active Substance: EXEMESTANE
     Indication: BREAST CANCER METASTATIC
     Route: 048
     Dates: start: 20160113
  10. TRASTUZUMAB. [Suspect]
     Active Substance: TRASTUZUMAB
     Indication: BREAST CANCER METASTATIC
     Route: 058
     Dates: start: 20150819, end: 20160323
  11. ANASTROZOLE. [Suspect]
     Active Substance: ANASTROZOLE
     Indication: BREAST CANCER METASTATIC
     Route: 048
     Dates: start: 20160113
  12. ATORVASTATIN [Concomitant]
     Active Substance: ATORVASTATIN
     Route: 048
     Dates: start: 20160412
  13. LANSOPRAZOLE. [Concomitant]
     Active Substance: LANSOPRAZOLE
     Route: 048
     Dates: start: 20160412
  14. FUROSEMIDE. [Concomitant]
     Active Substance: FUROSEMIDE
     Route: 048
  15. COCODAMOL [Concomitant]
     Active Substance: ACETAMINOPHEN\CODEINE PHOSPHATE
     Route: 048
     Dates: start: 201604
  16. TRIMETHOPRIM. [Concomitant]
     Active Substance: TRIMETHOPRIM
     Route: 048
     Dates: start: 20160411
  17. MACROGOL [Concomitant]
     Active Substance: POLYETHYLENE GLYCOLS
     Indication: CONSTIPATION PROPHYLAXIS
     Dosage: ORAL SUPPOSITORY 2 OTHER
     Route: 048
     Dates: start: 20150819

REACTIONS (18)
  - Superinfection [Recovering/Resolving]
  - Urinary tract infection [Not Recovered/Not Resolved]
  - Vomiting [Not Recovered/Not Resolved]
  - Ejection fraction decreased [Not Recovered/Not Resolved]
  - Lower respiratory tract infection [Recovered/Resolved]
  - Swelling face [Not Recovered/Not Resolved]
  - Pain in extremity [Not Recovered/Not Resolved]
  - Headache [Recovered/Resolved]
  - Headache [Not Recovered/Not Resolved]
  - Abdominal pain lower [Recovered/Resolved]
  - Cough [Recovered/Resolved]
  - Cellulitis [Recovered/Resolved]
  - Cerebrovascular accident [Recovered/Resolved]
  - Asthenia [Not Recovered/Not Resolved]
  - Hypertension [Recovered/Resolved]
  - Nausea [Not Recovered/Not Resolved]
  - Abdominal pain [Not Recovered/Not Resolved]
  - Mouth swelling [Recovered/Resolved]

NARRATIVE: CASE EVENT DATE: 20150705
